FAERS Safety Report 7469285-1 (Version None)
Quarter: 2011Q2

REPORT INFORMATION
  Report Type: 
  Country: None (occurrence: None)
  Receive Date: 20110510
  Receipt Date: 20110505
  Transmission Date: 20111010
  Serious: Yes (Other)
  Sender: FDA-Public Use
  Company Number: US-PFIZER INC-2011097536

PATIENT
  Sex: Female

DRUGS (1)
  1. LYRICA [Suspect]
     Dosage: UNK

REACTIONS (7)
  - PARAESTHESIA ORAL [None]
  - MYALGIA [None]
  - PAIN [None]
  - FUNGAL INFECTION [None]
  - TENDERNESS [None]
  - DRUG EFFECT DECREASED [None]
  - FEELING HOT [None]
